FAERS Safety Report 22284753 (Version 2)
Quarter: 2023Q2

REPORT INFORMATION
  Report Type: Report from Study
  Country: ES (occurrence: ES)
  Receive Date: 20230504
  Receipt Date: 20230626
  Transmission Date: 20230722
  Serious: Yes (Hospitalization)
  Sender: FDA-Public Use
  Company Number: ES-GLAXOSMITHKLINE-GB2023GSK058475

PATIENT

DRUGS (3)
  1. MEPOLIZUMAB [Suspect]
     Active Substance: MEPOLIZUMAB
     Indication: Hypereosinophilic syndrome
     Dosage: UNK
     Dates: start: 20160824, end: 20171207
  2. DEFLAZACORT [Concomitant]
     Active Substance: DEFLAZACORT
     Indication: Eosinophilia
     Dosage: 12 MG, Z (EOD)
     Route: 048
     Dates: start: 201305, end: 20171208
  3. DEFLAZACORT [Concomitant]
     Active Substance: DEFLAZACORT
     Dosage: 6 MG, Z (EOD)
     Route: 048
     Dates: start: 201305, end: 20171208

REACTIONS (1)
  - Disease recurrence [Recovered/Resolved]

NARRATIVE: CASE EVENT DATE: 20171208
